FAERS Safety Report 22891099 (Version 3)
Quarter: 2024Q2

REPORT INFORMATION
  Report Type: Spontaneous
  Country: JP (occurrence: JP)
  Receive Date: 20230901
  Receipt Date: 20240607
  Transmission Date: 20240715
  Serious: Yes (Hospitalization)
  Sender: FDA-Public Use
  Company Number: JP-ABBVIE-5385936

PATIENT
  Sex: Female

DRUGS (2)
  1. ASENAPINE MALEATE [Suspect]
     Active Substance: ASENAPINE MALEATE
     Indication: Bipolar I disorder
     Dosage: FORM STRENGTH: 5 MG
     Route: 060
  2. LITHIUM CARBONATE [Suspect]
     Active Substance: LITHIUM CARBONATE
     Indication: Bipolar I disorder
     Route: 048

REACTIONS (5)
  - Electrolyte imbalance [Unknown]
  - Delirium [Unknown]
  - Toxicity to various agents [Unknown]
  - Renal impairment [Unknown]
  - Blood creatine phosphokinase increased [Unknown]
